FAERS Safety Report 5675087-9 (Version None)
Quarter: 2008Q1

REPORT INFORMATION
  Report Type: 
  Country: None (occurrence: None)
  Receive Date: 20080320
  Receipt Date: 20080317
  Transmission Date: 20080703
  Serious: Yes (Other)
  Sender: FDA-Public Use
  Company Number: JP-BRISTOL-MYERS SQUIBB COMPANY-14115182

PATIENT
  Sex: Female

DRUGS (2)
  1. TAXOL [Suspect]
     Indication: NEOPLASM MALIGNANT
     Route: 041
     Dates: start: 20080307, end: 20080307
  2. PARAPLATIN [Suspect]
     Indication: NEOPLASM MALIGNANT
     Route: 041
     Dates: start: 20080307, end: 20080307

REACTIONS (2)
  - BLINDNESS TRANSIENT [None]
  - CEREBRAL INFARCTION [None]
